FAERS Safety Report 6614914-5 (Version None)
Quarter: 2010Q1

REPORT INFORMATION
  Report Type: 
  Country: None (occurrence: None)
  Receive Date: 20100305
  Receipt Date: 20100221
  Transmission Date: 20100710
  Serious: Yes (Hospitalization)
  Sender: FDA-Public Use
  Company Number: IT-RANBAXY-2010RR-32037

PATIENT
  Sex: Female

DRUGS (1)
  1. PARACETAMOL [Suspect]

REACTIONS (1)
  - HENOCH-SCHONLEIN PURPURA [None]
